FAERS Safety Report 9077574 (Version 1)
Quarter: 2013Q1

REPORT INFORMATION
  Report Type: Spontaneous
  Country: CO (occurrence: CO)
  Receive Date: 20130130
  Receipt Date: 20130130
  Transmission Date: 20140127
  Serious: Yes (Disabling)
  Sender: FDA-Public Use
  Company Number: CO-AMGEN-COLSP2013005865

PATIENT
  Age: 48 Year
  Sex: Male

DRUGS (3)
  1. ENBREL [Suspect]
     Indication: RHEUMATOID ARTHRITIS
     Dosage: 50 MG, WEEKLY
     Route: 058
     Dates: start: 201207, end: 2012
  2. CALCIUM WITH VITAMIN D             /00944201/ [Concomitant]
     Dosage: UNK
     Route: 048
  3. PREDNISOLON                        /00016201/ [Concomitant]
     Indication: RHEUMATOID ARTHRITIS
     Dosage: UNK, QID
     Route: 048

REACTIONS (3)
  - Gait disturbance [Not Recovered/Not Resolved]
  - Osteoarthritis [Unknown]
  - Drug ineffective [Unknown]
